FAERS Safety Report 5161800-6 (Version None)
Quarter: 2006Q4

REPORT INFORMATION
  Report Type: 
  Country: None (occurrence: None)
  Receive Date: 20061130
  Receipt Date: 20061127
  Transmission Date: 20070319
  Serious: Yes (Death, Life-Threatening)
  Sender: FDA-Public Use
  Company Number: 2006CG01942

PATIENT
  Age: 75 Year
  Sex: Male

DRUGS (8)
  1. OMEPRAZOLE [Suspect]
     Route: 048
  2. CORDARONE [Suspect]
     Route: 048
  3. LASIX [Suspect]
     Route: 048
  4. ASPIRIN [Suspect]
     Route: 048
  5. PERINDOPRIL ERBUMINE [Suspect]
     Route: 048
  6. FORTICREME [Concomitant]
  7. CLINUTREN [Concomitant]
  8. NERISONE CREME [Concomitant]
     Route: 061

REACTIONS (18)
  - ASPARTATE AMINOTRANSFERASE INCREASED [None]
  - BLOOD AMYLASE INCREASED [None]
  - BLOOD CREATINE PHOSPHOKINASE INCREASED [None]
  - BLOOD CREATININE INCREASED [None]
  - BLOOD POTASSIUM DECREASED [None]
  - BLOOD PRESSURE DIASTOLIC DECREASED [None]
  - BRADYCARDIA [None]
  - DEHYDRATION [None]
  - HAEMOGLOBIN DECREASED [None]
  - HEART SOUNDS ABNORMAL [None]
  - HYPOTENSION [None]
  - HYPOVENTILATION [None]
  - LOSS OF CONSCIOUSNESS [None]
  - OXYGEN SATURATION DECREASED [None]
  - PLATELET COUNT DECREASED [None]
  - PROTHROMBIN LEVEL DECREASED [None]
  - RALES [None]
  - SHOCK [None]
